FAERS Safety Report 11610211 (Version 5)
Quarter: 2015Q4

REPORT INFORMATION
  Report Type: Spontaneous
  Country: US (occurrence: US)
  Receive Date: 20151008
  Receipt Date: 20151023
  Transmission Date: 20160304
  Serious: Yes (Other)
  Sender: FDA-Public Use
  Company Number: US-AMGEN-USASP2015104093

PATIENT
  Age: 76 Year
  Sex: Female

DRUGS (1)
  1. ENBREL [Suspect]
     Active Substance: ETANERCEPT
     Indication: RHEUMATOID ARTHRITIS
     Dosage: UNK
     Route: 065
     Dates: start: 20080619

REACTIONS (7)
  - Drug dose omission [Unknown]
  - Nasopharyngitis [Unknown]
  - Injection site discomfort [Unknown]
  - Injection site pain [Unknown]
  - Malaise [Unknown]
  - Knee arthroplasty [Unknown]
  - Ear infection [Unknown]

NARRATIVE: CASE EVENT DATE: 2012
